FAERS Safety Report 5125850-8 (Version None)
Quarter: 2006Q3

REPORT INFORMATION
  Report Type: 
  Country: None (occurrence: None)
  Receive Date: 20060818
  Receipt Date: 20060530
  Transmission Date: 20061208
  Serious: No
  Sender: FDA-Public Use
  Company Number: SUS1-2006-00534

PATIENT
  Sex: Male

DRUGS (1)
  1. FOSRENOL [Suspect]

REACTIONS (2)
  - ABDOMINAL PAIN [None]
  - PAIN [None]
